FAERS Safety Report 5715875-3 (Version None)
Quarter: 2008Q2

REPORT INFORMATION
  Report Type: 
  Country: None (occurrence: None)
  Receive Date: 20080424
  Receipt Date: 20080415
  Transmission Date: 20081010
  Serious: Yes (Hospitalization)
  Sender: FDA-Public Use
  Company Number: JP-TEVA-170185ISR

PATIENT
  Age: 25 Year
  Sex: Male

DRUGS (3)
  1. CISPLATIN [Suspect]
     Indication: TESTIS CANCER
  2. IFOSFAMIDE [Suspect]
     Indication: TESTIS CANCER
  3. ETOPOSIDE [Suspect]
     Indication: TESTIS CANCER

REACTIONS (4)
  - COMA [None]
  - HAEMOTHORAX [None]
  - PULMONARY HAEMORRHAGE [None]
  - SHOCK HAEMORRHAGIC [None]
